FAERS Safety Report 7973355-9 (Version None)
Quarter: 2011Q4

REPORT INFORMATION
  Report Type: 
  Country: None (occurrence: None)
  Receive Date: 20111213
  Receipt Date: 20110805
  Transmission Date: 20120403
  Serious: Yes (Hospitalization)
  Sender: FDA-Public Use
  Company Number: US-AMGEN-USASP2011039794

PATIENT
  Age: 61 Year
  Sex: Male
  Weight: 74 kg

DRUGS (7)
  1. FOLIC ACID [Concomitant]
     Dosage: 1 MG, UNK
  2. PERCOCET [Concomitant]
  3. ARANESP [Suspect]
     Indication: PRODUCT USED FOR UNKNOWN INDICATION
     Dosage: UNK
  4. LISINOPRIL [Concomitant]
     Dosage: 20 MG, UNK
     Route: 048
  5. CISPLATIN [Concomitant]
     Indication: MESOTHELIOMA
     Dosage: 75 MG/M2, Q3WK
     Dates: start: 20090714
  6. PEMETREXED [Concomitant]
     Indication: MESOTHELIOMA
     Dosage: 500 MG/M2, Q3WK
     Dates: start: 20090714
  7. B12-VITAMIIN [Concomitant]

REACTIONS (1)
  - HYPERTENSION [None]
